FAERS Safety Report 9733852 (Version 2)
Quarter: 2013Q4

REPORT INFORMATION
  Report Type: Spontaneous
  Country: JP (occurrence: JP)
  Receive Date: 20131205
  Receipt Date: 20131220
  Transmission Date: 20140711
  Serious: Yes (Hospitalization, Other)
  Sender: FDA-Public Use
  Company Number: JP-BAXTER-2013BAX047603

PATIENT
  Sex: Male

DRUGS (2)
  1. DIANEAL-N PD-4 2.5 [Suspect]
     Indication: RENAL FAILURE CHRONIC
     Route: 033
     Dates: start: 201311
  2. EXTRANEAL [Suspect]
     Indication: RENAL FAILURE CHRONIC
     Route: 033
     Dates: start: 201006

REACTIONS (4)
  - Dementia [Unknown]
  - Nasopharyngitis [Recovered/Resolved]
  - Fluid retention [Recovered/Resolved]
  - Ultrafiltration failure [Recovered/Resolved]
